FAERS Safety Report 4309958-2 (Version None)
Quarter: 2004Q1

REPORT INFORMATION
  Report Type: 
  Country: None (occurrence: None)
  Receive Date: 20040303
  Receipt Date: 20040223
  Transmission Date: 20041129
  Serious: Yes (Other)
  Sender: FDA-Public Use
  Company Number: US-BRISTOL-MYERS SQUIBB COMPANY-12514329

PATIENT
  Sex: Male

DRUGS (1)
  1. PRAVACHOL [Suspect]
     Indication: BLOOD CHOLESTEROL INCREASED
     Dosage: DURATION OF THERAPY: ^A COUPLE OF WEEKS^
     Route: 048

REACTIONS (3)
  - CARDIAC ENZYMES INCREASED [None]
  - HEPATIC ENZYME INCREASED [None]
  - SERUM SICKNESS [None]
